FAERS Safety Report 9196886 (Version 2)
Quarter: 2013Q2

REPORT INFORMATION
  Report Type: Spontaneous
  Country: BR (occurrence: BR)
  Receive Date: 20130328
  Receipt Date: 20130404
  Transmission Date: 20140414
  Serious: Yes (Hospitalization, Other)
  Sender: FDA-Public Use
  Company Number: BR-PFIZER INC-2013097928

PATIENT
  Age: 61 Year
  Sex: Female

DRUGS (3)
  1. OLMETEC HCT [Suspect]
     Indication: HYPERTENSION
     Dosage: [OLMESARTAN MEDOXOMIL 40 MG]/ [HYDROCHLOROTHIAZIDE 25 MG], 1X/DAY
     Route: 048
  2. LIPITOR [Suspect]
     Indication: BLOOD CHOLESTEROL INCREASED
     Dosage: 20 MG, 1X/DAY
     Route: 048
  3. XALATAN [Suspect]
     Indication: GLAUCOMA
     Dosage: 3 UG, 1X/DAY (IN EACH EYE)
     Route: 047
     Dates: start: 201301

REACTIONS (5)
  - Herpes virus infection [Unknown]
  - Spinal column injury [Unknown]
  - Vomiting [Unknown]
  - Blood pressure inadequately controlled [Unknown]
  - Malaise [Unknown]
